FAERS Safety Report 21097115 (Version 3)
Quarter: 2022Q4

REPORT INFORMATION
  Report Type: Spontaneous
  Country: US (occurrence: US)
  Receive Date: 20220719
  Receipt Date: 20221011
  Transmission Date: 20230112
  Serious: No
  Sender: FDA-Public Use
  Company Number: US-GSKCCFUS-Case-01435657_AE-82419

PATIENT
  Age: 61 Year
  Sex: Female

DRUGS (1)
  1. BENLYSTA [Suspect]
     Active Substance: BELIMUMAB
     Indication: Product used for unknown indication
     Dosage: 200 MG, Z
     Route: 058
     Dates: start: 20220629

REACTIONS (6)
  - Injection site pain [Recovered/Resolved]
  - Wrong technique in device usage process [Unknown]
  - Exposure via skin contact [Unknown]
  - Accidental exposure to product [Unknown]
  - Underdose [Unknown]
  - Product complaint [Unknown]

NARRATIVE: CASE EVENT DATE: 20220706
